FAERS Safety Report 18769449 (Version 1)
Quarter: 2021Q1

REPORT INFORMATION
  Report Type: Spontaneous
  Country: RO (occurrence: RO)
  Receive Date: 20210121
  Receipt Date: 20210121
  Transmission Date: 20210419
  Serious: Yes (Death)
  Sender: FDA-Public Use
  Company Number: RO-ELI_LILLY_AND_COMPANY-RO202101006759

PATIENT
  Age: 84 Year
  Sex: Male

DRUGS (2)
  1. REMDESIVIR. [Concomitant]
     Active Substance: REMDESIVIR
     Indication: COVID-19
     Dosage: UNK, UNKNOWN
  2. OLUMIANT [Suspect]
     Active Substance: BARICITINIB
     Indication: COVID-19
     Dosage: 4 MG, UNKNOWN
     Route: 065

REACTIONS (2)
  - Death [Fatal]
  - Off label use [Unknown]
